FAERS Safety Report 6441683 (Version 4)
Quarter: 2018Q3

REPORT INFORMATION
  Report Type: Spontaneous
  Country: GB (occurrence: GB)
  Receive Date: 20071001
  Receipt Date: 20180822
  Transmission Date: 20181010
  Serious: Yes (Other)
  Sender: FDA-Public Use
  Company Number: CHNY2007GB03209

PATIENT
  Age: 21 Year
  Sex: Female

DRUGS (4)
  1. AZITHROMYCIN ANHYDROUS. [Interacting]
     Active Substance: AZITHROMYCIN ANHYDROUS
     Indication: ANTIINFLAMMATORY THERAPY
     Route: 065
     Dates: end: 2003
  2. TOBRAMYCIN. [Suspect]
     Active Substance: TOBRAMYCIN
     Indication: PSEUDOMONAS INFECTION
     Dosage: 8 MG/KG, QD
     Route: 042
     Dates: start: 200311
  3. COLOMYCIN (COLISTIN) [Suspect]
     Active Substance: COLISTIN SULFATE
     Indication: PSEUDOMONAS INFECTION
     Dosage: 2 DF, TID
     Route: 042
     Dates: start: 200311
  4. IBUPROFEN. [Interacting]
     Active Substance: IBUPROFEN
     Indication: ARTHROPATHY
     Dosage: UNK
     Route: 065
     Dates: start: 2003, end: 2003

REACTIONS (11)
  - Weight decreased [Recovered/Resolved]
  - Drug interaction [Recovered/Resolved]
  - Dyspepsia [Recovered/Resolved]
  - Vomiting [Recovered/Resolved]
  - Acute kidney injury [Recovered/Resolved]
  - Blood creatinine increased [Recovered/Resolved]
  - Arthropathy [Recovered/Resolved]
  - Hypophagia [Recovered/Resolved]
  - Blood urea increased [Recovered/Resolved]
  - Influenza like illness [Recovered/Resolved]
  - Inadequate analgesia [None]
